FAERS Safety Report 22102137 (Version 1)
Quarter: 2023Q1

REPORT INFORMATION
  Report Type: Spontaneous
  Country: DE (occurrence: DE)
  Receive Date: 20230316
  Receipt Date: 20230316
  Transmission Date: 20230418
  Serious: Yes (Hospitalization, Other)
  Sender: FDA-Public Use
  Company Number: DE-BFARM-22004139

PATIENT
  Age: 40 Year
  Sex: Female

DRUGS (4)
  1. LEUPROLIDE ACETATE [Suspect]
     Active Substance: LEUPROLIDE ACETATE
     Indication: Assisted reproductive technology
     Dosage: UNK (UNK)
     Route: 065
     Dates: start: 20220421
  2. PROGESTERONE [Suspect]
     Active Substance: PROGESTERONE
     Indication: Assisted reproductive technology
     Dosage: 1 DOSAGE FORM, Q12H (1 DOSAGE FORM, Q12H)
     Route: 065
     Dates: start: 20220524
  3. CHORIOGONADOTROPIN ALFA [Suspect]
     Active Substance: CHORIOGONADOTROPIN ALFA
     Indication: Assisted reproductive technology
     Dosage: UNK (UNK)
     Route: 065
     Dates: start: 20220521
  4. FOLLITROPIN\LUTROPIN ALFA [Suspect]
     Active Substance: FOLLITROPIN\LUTROPIN ALFA
     Indication: Assisted reproductive technology
     Dosage: UNK (UNK)
     Route: 065
     Dates: start: 20220509, end: 20220520

REACTIONS (2)
  - Ovarian hyperstimulation syndrome [Recovered/Resolved]
  - Dyspnoea [Recovered/Resolved]

NARRATIVE: CASE EVENT DATE: 20220528
